FAERS Safety Report 18582555 (Version 1)
Quarter: 2020Q4

REPORT INFORMATION
  Report Type: Spontaneous
  Country: JP (occurrence: JP)
  Receive Date: 20201205
  Receipt Date: 20201205
  Transmission Date: 20210114
  Serious: Yes (Other)
  Sender: FDA-Public Use
  Company Number: JP-SUN PHARMACEUTICAL INDUSTRIES LTD-2020RR-269286

PATIENT
  Age: 67 Year
  Sex: Male
  Weight: 72.8 kg

DRUGS (5)
  1. RAMUCIRUMAB [Suspect]
     Active Substance: RAMUCIRUMAB
     Indication: GASTRIC CANCER
     Dosage: 9 COURSES OF PACLITAXEL (PTX) + RAMUCIRUMAB (RAM) THERAPY
     Route: 065
  2. TS-1 [Suspect]
     Active Substance: GIMERACIL\OTERACIL\TEGAFUR
     Indication: GASTRIC CANCER
     Dosage: SOX REGIMEN, 10 COURSES
     Route: 065
  3. IRINOTECAN [Suspect]
     Active Substance: IRINOTECAN
     Indication: GASTRIC CANCER
     Dosage: 9 COURSES
     Route: 065
  4. PACLITAXEL. [Suspect]
     Active Substance: PACLITAXEL
     Indication: GASTRIC CANCER
     Dosage: 9 COURSES OF PACLITAXEL (PTX) + RAMUCIRUMAB (RAM) THERAPY
     Route: 065
  5. OXALIPLATIN. [Suspect]
     Active Substance: OXALIPLATIN
     Indication: GASTRIC CANCER
     Dosage: SOX REGIMEN, 10 COURSES
     Route: 065

REACTIONS (3)
  - Ascites [Unknown]
  - Lymphadenopathy [Unknown]
  - Disease progression [Unknown]
